FAERS Safety Report 24899423 (Version 1)
Quarter: 2025Q1

REPORT INFORMATION
  Report Type: Other
  Country: ES (occurrence: ES)
  Receive Date: 20250129
  Receipt Date: 20250129
  Transmission Date: 20250408
  Serious: Yes (Hospitalization, Other)
  Sender: NOVUGEN ONCOLOGY SDN. BHD.
  Company Number: ES-Novugen Oncology Sdn. Bhd.-2170010

PATIENT
  Age: 70 Year
  Sex: Male

DRUGS (2)
  1. SUNITINIB [Suspect]
     Active Substance: SUNITINIB
     Indication: Clear cell renal cell carcinoma
  2. SUNITINIB [Suspect]
     Active Substance: SUNITINIB
     Indication: Renal cancer stage IV

REACTIONS (7)
  - Toxic skin eruption [Recovered/Resolved]
  - Skin toxicity [Recovered/Resolved]
  - Palmar-plantar erythrodysaesthesia syndrome [Recovered/Resolved]
  - Oedema genital [Recovered/Resolved]
  - Constipation [Recovered/Resolved]
  - Anaemia [Recovered/Resolved]
  - Stomatitis [Recovered/Resolved]
